FAERS Safety Report 13039189 (Version 1)
Quarter: 2016Q4

REPORT INFORMATION
  Report Type: Report from Study
  Country: MX (occurrence: MX)
  Receive Date: 20161219
  Receipt Date: 20161219
  Transmission Date: 20170207
  Serious: Yes (Death, Hospitalization, Other)
  Sender: FDA-Public Use
  Company Number: PHHY2016MX171918

PATIENT
  Age: 83 Year
  Sex: Female

DRUGS (3)
  1. DIABION [Concomitant]
     Indication: PRODUCT USED FOR UNKNOWN INDICATION
     Route: 065
  2. EXFORGE [Suspect]
     Active Substance: AMLODIPINE BESYLATE\VALSARTAN
     Indication: HYPERTENSION
     Dosage: 1 DF (AMLODIPINE 10 MG AND VALSARTAN 160 MG),  QD
     Route: 048
     Dates: end: 20161015
  3. INSOGEN PLUS [Concomitant]
     Indication: DIABETES MELLITUS
     Dosage: 1 OT, (EVERY 8 HOURS) (MANY YEARS AGO)
     Route: 048
     Dates: end: 20161015

REACTIONS (2)
  - Asthenia [Fatal]
  - Angina unstable [Unknown]

NARRATIVE: CASE EVENT DATE: 20161015
